FAERS Safety Report 8607369-2 (Version None)
Quarter: 2012Q3

REPORT INFORMATION
  Report Type: 
  Country: None (occurrence: None)
  Receive Date: 20120821
  Receipt Date: 20120815
  Transmission Date: 20120928
  Serious: No
  Sender: FDA-Public Use
  Company Number: US-PFIZER INC-2012200805

PATIENT
  Age: 56 Year
  Sex: Female
  Weight: 58.957 kg

DRUGS (1)
  1. PREMPRO [Suspect]
     Indication: POSTMENOPAUSE
     Dosage: 0.3/1.5 MG, DAILY
     Route: 048
     Dates: start: 20120501

REACTIONS (2)
  - FATIGUE [None]
  - FEELING COLD [None]
